FAERS Safety Report 7739855-1 (Version None)
Quarter: 2011Q3

REPORT INFORMATION
  Report Type: 
  Country: None (occurrence: None)
  Receive Date: 20110909
  Receipt Date: 20110902
  Transmission Date: 20111222
  Serious: Yes (Other)
  Sender: FDA-Public Use
  Company Number: PHHY2011BR78934

PATIENT
  Sex: Female

DRUGS (1)
  1. EXELON [Suspect]
     Dosage: 18 MG/10CM^2
     Route: 062

REACTIONS (4)
  - PARALYSIS [None]
  - NERVOUSNESS [None]
  - MUSCULOSKELETAL STIFFNESS [None]
  - ABASIA [None]
